FAERS Safety Report 4659350-6 (Version None)
Quarter: 2005Q2

REPORT INFORMATION
  Report Type: 
  Country: None (occurrence: None)
  Receive Date: 20050510
  Receipt Date: 20050428
  Transmission Date: 20051028
  Serious: Yes (Hospitalization)
  Sender: FDA-Public Use
  Company Number: 05P-056-0298835-00

PATIENT
  Age: 18 Year
  Sex: Male

DRUGS (10)
  1. DEPAKENE [Suspect]
     Indication: EPILEPSY
     Dosage: SEE IMAGE
     Route: 048
     Dates: start: 19900101, end: 20050130
  2. DEPAKENE [Suspect]
     Indication: LENNOX-GASTAUT SYNDROME
     Dosage: SEE IMAGE
     Route: 048
     Dates: start: 19900101, end: 20050130
  3. DEPAKENE [Suspect]
     Indication: EPILEPSY
     Dosage: SEE IMAGE
     Route: 048
     Dates: start: 20040131
  4. DEPAKENE [Suspect]
     Indication: LENNOX-GASTAUT SYNDROME
     Dosage: SEE IMAGE
     Route: 048
     Dates: start: 20040131
  5. FELBAMATE [Suspect]
     Indication: EPILEPSY
     Dosage: SEE IMAGE
     Route: 048
     Dates: start: 20011101, end: 20040509
  6. FELBAMATE [Suspect]
     Indication: LENNOX-GASTAUT SYNDROME
     Dosage: SEE IMAGE
     Route: 048
     Dates: start: 20011101, end: 20040509
  7. FELBAMATE [Suspect]
     Indication: EPILEPSY
     Dosage: SEE IMAGE
     Route: 048
     Dates: start: 20040510
  8. FELBAMATE [Suspect]
     Indication: LENNOX-GASTAUT SYNDROME
     Dosage: SEE IMAGE
     Route: 048
     Dates: start: 20040510
  9. LAMOTRIGINE [Concomitant]
  10. CLOBAZAM [Concomitant]

REACTIONS (16)
  - ABDOMINAL PAIN [None]
  - ASTHENIA [None]
  - COORDINATION ABNORMAL [None]
  - DIET REFUSAL [None]
  - DRUG INTERACTION [None]
  - DRUG LEVEL INCREASED [None]
  - DYSSTASIA [None]
  - HYPOTENSION [None]
  - HYPOTHERMIA [None]
  - HYPOTONIA [None]
  - MALAISE [None]
  - MUTISM [None]
  - PERIPHERAL COLDNESS [None]
  - SKIN DISCOLOURATION [None]
  - SOMNOLENCE [None]
  - VOMITING [None]
